FAERS Safety Report 7487165-2 (Version None)
Quarter: 2011Q2

REPORT INFORMATION
  Report Type: 
  Country: None (occurrence: None)
  Receive Date: 20110518
  Receipt Date: 20110504
  Transmission Date: 20111010
  Serious: Yes (Hospitalization, Other)
  Sender: FDA-Public Use
  Company Number: US-ELI_LILLY_AND_COMPANY-US201104002441

PATIENT
  Sex: Female
  Weight: 59.864 kg

DRUGS (7)
  1. NUCYNTA [Concomitant]
     Dosage: 100 MG, EVERY 4 HRS
  2. LYRICA [Concomitant]
     Dosage: 30 MG, OTHER
  3. FORTEO [Suspect]
     Indication: OSTEOPOROSIS
     Dosage: 20 UG, QD
     Route: 058
  4. SIMVASTATIN [Concomitant]
     Dosage: 20 MG, OTHER
  5. VITAMIN D [Concomitant]
  6. CALCIUM CARBONATE [Concomitant]
  7. LEXAPRO [Concomitant]
     Dosage: 20 MG, QD

REACTIONS (1)
  - CEREBROVASCULAR ACCIDENT [None]
